FAERS Safety Report 10057964 (Version 1)
Quarter: 2014Q2

REPORT INFORMATION
  Report Type: Spontaneous
  Country: US (occurrence: US)
  Receive Date: 20140404
  Receipt Date: 20140404
  Transmission Date: 20141212
  Serious: Yes (Life-Threatening, Hospitalization)
  Sender: FDA-Public Use
  Company Number: US-ELI_LILLY_AND_COMPANY-US201404000101

PATIENT
  Sex: Male

DRUGS (2)
  1. PROZAC [Suspect]
     Indication: PRODUCT USED FOR UNKNOWN INDICATION
     Dosage: UNK, UNKNOWN
     Route: 065
  2. COPAXONE [Suspect]
     Indication: MULTIPLE SCLEROSIS
     Dosage: 20 MG, UNKNOWN
     Route: 065
     Dates: start: 20101022

REACTIONS (5)
  - General physical health deterioration [Unknown]
  - Heart rate increased [Unknown]
  - Loss of consciousness [Unknown]
  - Stupor [Unknown]
  - Prescribed overdose [Unknown]
